FAERS Safety Report 5828539-2 (Version None)
Quarter: 2008Q3

REPORT INFORMATION
  Report Type: 
  Country: None (occurrence: None)
  Receive Date: 20080731
  Receipt Date: 20080716
  Transmission Date: 20090109
  Serious: Yes (Other)
  Sender: FDA-Public Use
  Company Number: PL-GENENTECH-264598

PATIENT
  Age: 32 Year
  Sex: Female

DRUGS (1)
  1. XOLAIR [Suspect]
     Indication: ASTHMA
     Dosage: 300 MG, Q28D
     Dates: start: 20060301

REACTIONS (3)
  - ANAPHYLACTIC REACTION [None]
  - MALAISE [None]
  - SOMNOLENCE [None]
